FAERS Safety Report 21156436 (Version 1)
Quarter: 2022Q3

REPORT INFORMATION
  Report Type: Report from Study
  Country: FR (occurrence: None)
  Receive Date: 20220801
  Receipt Date: 20220801
  Transmission Date: 20221027
  Serious: Yes (Death)
  Sender: FDA-Public Use
  Company Number: 2022A267998

PATIENT
  Age: 896 Month
  Sex: Female
  Weight: 45.5 kg

DRUGS (3)
  1. EVUSHELD [Suspect]
     Active Substance: CILGAVIMAB\TIXAGEVIMAB
     Indication: COVID-19
     Dosage: ONCE/SINGLE ADMINISTRATION
     Route: 030
     Dates: start: 20220216, end: 20220216
  2. PREDNISONE [Concomitant]
     Active Substance: PREDNISONE
     Route: 065
  3. MYFORTIC [Concomitant]
     Active Substance: MYCOPHENOLATE SODIUM
     Route: 065

REACTIONS (1)
  - Death [Fatal]

NARRATIVE: CASE EVENT DATE: 20220501
